FAERS Safety Report 14754027 (Version 2)
Quarter: 2018Q2

REPORT INFORMATION
  Report Type: Spontaneous
  Country: IT (occurrence: IT)
  Receive Date: 20180412
  Receipt Date: 20180515
  Transmission Date: 20180711
  Serious: Yes (Life-Threatening)
  Sender: FDA-Public Use
  Company Number: IT-TEVA-2018-IT-879210

PATIENT
  Age: 59 Year
  Sex: Female

DRUGS (1)
  1. CARBOPLATIN. [Suspect]
     Active Substance: CARBOPLATIN
     Indication: UTERINE CANCER
     Route: 042
     Dates: start: 20180109, end: 20180109

REACTIONS (9)
  - Erythema [Recovered/Resolved]
  - Bladder sphincter atony [Recovered/Resolved]
  - Hyperhidrosis [Recovered/Resolved]
  - Tachycardia [Recovered/Resolved]
  - Presyncope [Recovered/Resolved]
  - Loss of consciousness [Recovered/Resolved]
  - Chest pain [Recovered/Resolved]
  - Anal sphincter atony [Recovered/Resolved]
  - Asthenia [Recovered/Resolved]

NARRATIVE: CASE EVENT DATE: 20180109
